FAERS Safety Report 21387676 (Version 2)
Quarter: 2022Q4

REPORT INFORMATION
  Report Type: Spontaneous
  Country: FR (occurrence: FR)
  Receive Date: 20220928
  Receipt Date: 20221014
  Transmission Date: 20230112
  Serious: No
  Sender: FDA-Public Use
  Company Number: FR-NOVARTISPH-NVSC2022FR216234

PATIENT
  Age: 42 Year
  Sex: Female

DRUGS (3)
  1. HYRIMOZ [Suspect]
     Active Substance: ADALIMUMAB-ADAZ
     Indication: Crohn^s disease
     Dosage: 4 DOSAGE FORM, QD
     Route: 065
     Dates: start: 20220414, end: 20220414
  2. HYRIMOZ [Suspect]
     Active Substance: ADALIMUMAB-ADAZ
     Dosage: 2 DOSAGE FORM, QD
     Route: 065
     Dates: start: 20220429, end: 20220429
  3. HYRIMOZ [Suspect]
     Active Substance: ADALIMUMAB-ADAZ
     Dosage: 1 DOSAGE FORM, EVERY 15 DAYS
     Route: 065

REACTIONS (5)
  - Acne [Not Recovered/Not Resolved]
  - Thermal burn [Recovering/Resolving]
  - Tonsillitis [Unknown]
  - Night sweats [Unknown]
  - Pruritus [Not Recovered/Not Resolved]
